FAERS Safety Report 5759824-0 (Version None)
Quarter: 2008Q2

REPORT INFORMATION
  Report Type: 
  Country: None (occurrence: None)
  Receive Date: 20080605
  Receipt Date: 20080521
  Transmission Date: 20081010
  Serious: Yes (Other)
  Sender: FDA-Public Use
  Company Number: PHNR2005AU00551

PATIENT
  Age: 59 Year
  Sex: Male

DRUGS (2)
  1. GLEEVEC [Suspect]
     Indication: CHRONIC MYELOID LEUKAEMIA
     Dosage: 500 MG, QD
     Route: 048
     Dates: start: 20041229
  2. GLEEVEC [Suspect]
     Dosage: 400 MG, QD
     Route: 048

REACTIONS (5)
  - BALANCE DISORDER [None]
  - EAR INFECTION [None]
  - PERIORBITAL OEDEMA [None]
  - SKIN CANCER [None]
  - THERAPEUTIC PROCEDURE [None]
